FAERS Safety Report 12284699 (Version 2)
Quarter: 2016Q4

REPORT INFORMATION
  Report Type: Spontaneous
  Country: US (occurrence: US)
  Receive Date: 20160420
  Receipt Date: 20161012
  Transmission Date: 20170207
  Serious: No
  Sender: FDA-Public Use
  Company Number: US-TEVA-645599USA

PATIENT
  Age: 32 Year
  Sex: Female

DRUGS (1)
  1. ZECUITY [Suspect]
     Active Substance: SUMATRIPTAN SUCCINATE
     Route: 062
     Dates: start: 201602, end: 201602

REACTIONS (4)
  - Application site discolouration [Not Recovered/Not Resolved]
  - Application site bruise [Not Recovered/Not Resolved]
  - Malaise [Unknown]
  - Migraine [Unknown]

NARRATIVE: CASE EVENT DATE: 201602
